FAERS Safety Report 6756440-9 (Version None)
Quarter: 2010Q2

REPORT INFORMATION
  Report Type: 
  Country: None (occurrence: None)
  Receive Date: 20100604
  Receipt Date: 20100528
  Transmission Date: 20101027
  Serious: Yes (Death)
  Sender: FDA-Public Use
  Company Number: A0862003A

PATIENT
  Age: 62 Year
  Sex: Female

DRUGS (3)
  1. LAMICTAL [Suspect]
     Indication: BACK PAIN
     Dosage: 150MG UNKNOWN
     Route: 048
     Dates: start: 20080101, end: 20080101
  2. LYRICA [Suspect]
     Indication: BACK PAIN
     Route: 065
  3. ZOLOFT [Concomitant]

REACTIONS (2)
  - COMPLETED SUICIDE [None]
  - DRUG DISPENSING ERROR [None]
